FAERS Safety Report 19420931 (Version 1)
Quarter: 2021Q2

REPORT INFORMATION
  Report Type: Spontaneous
  Country: US (occurrence: US)
  Receive Date: 20210616
  Receipt Date: 20210616
  Transmission Date: 20210717
  Serious: Yes (Hospitalization, Other)
  Sender: FDA-Public Use
  Company Number: US-CELLTRION INC.-2021US007934

PATIENT

DRUGS (3)
  1. DEXAMETHASONE. [Suspect]
     Active Substance: DEXAMETHASONE
     Indication: WALDENSTROM^S MACROGLOBULINAEMIA
  2. RITUXIMAB (UNKNOWN) [Suspect]
     Active Substance: RITUXIMAB
     Indication: WALDENSTROM^S MACROGLOBULINAEMIA
  3. CYCLOPHOSPHAMIDE. [Suspect]
     Active Substance: CYCLOPHOSPHAMIDE
     Indication: WALDENSTROM^S MACROGLOBULINAEMIA

REACTIONS (11)
  - Dysarthria [Unknown]
  - Seizure [Unknown]
  - Drug effect less than expected [Unknown]
  - Atrial fibrillation [Unknown]
  - Disease progression [Unknown]
  - Facial paresis [Unknown]
  - Muscular weakness [Unknown]
  - Pneumonia aspiration [Unknown]
  - Off label use [Unknown]
  - Periventricular leukomalacia [Unknown]
  - Blood immunoglobulin M increased [Unknown]
